FAERS Safety Report 8351118-2 (Version None)
Quarter: 2012Q2

REPORT INFORMATION
  Report Type: 
  Country: None (occurrence: None)
  Receive Date: 20120510
  Receipt Date: 20120502
  Transmission Date: 20120825
  Serious: Yes (Hospitalization, Other)
  Sender: FDA-Public Use
  Company Number: US-JNJFOC-20120504722

PATIENT
  Sex: Male

DRUGS (2)
  1. CELEBREX [Concomitant]
  2. XARELTO [Suspect]
     Indication: KNEE ARTHROPLASTY
     Route: 048
     Dates: start: 20120405

REACTIONS (1)
  - PULMONARY EMBOLISM [None]
